FAERS Safety Report 12427008 (Version 4)
Quarter: 2016Q3

REPORT INFORMATION
  Report Type: Spontaneous
  Country: US (occurrence: US)
  Receive Date: 20160601
  Receipt Date: 20160901
  Transmission Date: 20161109
  Serious: Yes (Death, Hospitalization, Other)
  Sender: FDA-Public Use
  Company Number: US-RELYPSA-RLY2016000783

PATIENT
  Age: 70 Year
  Sex: Male

DRUGS (15)
  1. VELTASSA [Suspect]
     Active Substance: PATIROMER
     Dosage: 8.4 G, UNKNOWN
     Route: 065
     Dates: start: 201602, end: 201602
  2. KIONEX [Concomitant]
     Active Substance: SODIUM POLYSTYRENE SULFONATE
     Indication: HYPERKALAEMIA
     Dosage: 15 G, UNKNOWN
     Dates: start: 201602
  3. SODIUM BICARBONATE. [Concomitant]
     Active Substance: SODIUM BICARBONATE
     Dosage: 650 MG, UNKNOWN
  4. NAPROXEN. [Concomitant]
     Active Substance: NAPROXEN
     Dosage: 500 MG, UNKNOWN
  5. ATORVASTATIN                       /01326102/ [Concomitant]
     Active Substance: ATORVASTATIN
     Dosage: 40 MG, UNKNOWN
  6. LACTULOSE. [Concomitant]
     Active Substance: LACTULOSE
  7. ASPIRIN                            /00002701/ [Concomitant]
     Active Substance: ASPIRIN
  8. BRILINTA [Concomitant]
     Active Substance: TICAGRELOR
     Dosage: 90 MG, UNKNOWN
  9. VELTASSA [Suspect]
     Active Substance: PATIROMER
     Indication: HYPERKALAEMIA
     Dosage: 8.4 G, QD
     Route: 065
     Dates: start: 20160111, end: 20160201
  10. AMLODIPINE BESYLATE. [Concomitant]
     Active Substance: AMLODIPINE BESYLATE
  11. LISINOPRIL. [Concomitant]
     Active Substance: LISINOPRIL
     Dosage: 5 MG, UNKNOWN
  12. CARVEDILOL. [Concomitant]
     Active Substance: CARVEDILOL
     Dosage: 12.5 MG, UNKNOWN
  13. VELTASSA [Suspect]
     Active Substance: PATIROMER
     Dosage: 16.8 G, UNKNOWN
     Route: 048
     Dates: start: 201602
  14. NITROSTAT [Concomitant]
     Active Substance: NITROGLYCERIN
     Dosage: 0.4 MG, UNKNOWN
  15. FUROSEMIDE. [Concomitant]
     Active Substance: FUROSEMIDE
     Dosage: 40 MG, UNKNOWN

REACTIONS (6)
  - Gastrointestinal fistula [Unknown]
  - Large intestine perforation [Unknown]
  - Small intestinal perforation [Unknown]
  - Post procedural complication [Fatal]
  - Bile duct stone [Unknown]
  - Mesenteric artery stenosis [Unknown]

NARRATIVE: CASE EVENT DATE: 2016
